FAERS Safety Report 4883113-X (Version None)
Quarter: 2006Q1

REPORT INFORMATION
  Report Type: 
  Country: None (occurrence: None)
  Receive Date: 20060118
  Receipt Date: 20060109
  Transmission Date: 20060701
  Serious: Yes (Hospitalization, Other)
  Sender: FDA-Public Use
  Company Number: GB-AVENTIS-200610313GDDC

PATIENT
  Age: 14 Month
  Sex: Female

DRUGS (1)
  1. CEFOTAXIME [Suspect]
     Indication: SEPSIS
     Dosage: DOSE: UNK

REACTIONS (13)
  - COLOSTOMY [None]
  - CONVULSION [None]
  - GASTROINTESTINAL DISORDER [None]
  - LEARNING DISORDER [None]
  - MALAISE [None]
  - MENINGITIS MENINGOCOCCAL [None]
  - MENTAL IMPAIRMENT [None]
  - METABOLIC ACIDOSIS [None]
  - MULTI-ORGAN FAILURE [None]
  - PNEUMOCOCCAL SEPSIS [None]
  - SEPSIS [None]
  - SHOCK [None]
  - VISUAL DISTURBANCE [None]
